FAERS Safety Report 17495001 (Version 2)
Quarter: 2021Q1

REPORT INFORMATION
  Report Type: Spontaneous
  Country: US (occurrence: US)
  Receive Date: 20200303
  Receipt Date: 20210303
  Transmission Date: 20210419
  Serious: No
  Sender: FDA-Public Use
  Company Number: US-AMNEAL PHARMACEUTICALS-2019-AMRX-03072

PATIENT
  Age: 80 Year
  Sex: Male
  Weight: 61 kg

DRUGS (15)
  1. RYTARY [Suspect]
     Active Substance: CARBIDOPA\LEVODOPA
     Dosage: 2 CAPSULES, 4 /DAY
     Route: 048
  2. RYTARY [Suspect]
     Active Substance: CARBIDOPA\LEVODOPA
     Dosage: 2 CAPSULES, 4 /DAY
     Route: 048
     Dates: start: 2019, end: 2019
  3. RYTARY [Suspect]
     Active Substance: CARBIDOPA\LEVODOPA
     Dosage: 3 CAPSULES, DAILY
     Route: 048
     Dates: start: 20191111
  4. RYTARY [Suspect]
     Active Substance: CARBIDOPA\LEVODOPA
     Dosage: 8 CAPSULES, QD, 2 CAPS AT 8AM, 1 CAPS AT 12NOON, 2 TABS AT 4PM AND 1 TAB AT 8PM
     Route: 048
     Dates: start: 2019
  5. RYTARY [Suspect]
     Active Substance: CARBIDOPA\LEVODOPA
     Dosage: 1 CAPSULES, 4 /DAY
     Route: 048
     Dates: start: 2019
  6. RYTARY [Suspect]
     Active Substance: CARBIDOPA\LEVODOPA
     Dosage: 2 CAPSULES, 4 /DAY
     Route: 048
  7. RYTARY [Suspect]
     Active Substance: CARBIDOPA\LEVODOPA
     Dosage: 2 CAPSULES, 4 /DAY
     Route: 048
  8. RYTARY [Suspect]
     Active Substance: CARBIDOPA\LEVODOPA
     Indication: PARKINSON^S DISEASE
     Dosage: 3 CAPSULES, QID
     Route: 048
     Dates: start: 20191111, end: 2019
  9. RYTARY [Suspect]
     Active Substance: CARBIDOPA\LEVODOPA
     Dosage: 6 CAPSULES, QD
     Route: 048
     Dates: start: 202004
  10. RYTARY [Suspect]
     Active Substance: CARBIDOPA\LEVODOPA
     Dosage: 4 CAPSULES, QD
     Route: 048
     Dates: start: 202005
  11. RYTARY [Suspect]
     Active Substance: CARBIDOPA\LEVODOPA
     Dosage: 5 CAPSULES, QD, 8AM (1) ? 12NN (1) ?4PM(2) ? 8PM(1)
     Route: 048
  12. RYTARY [Suspect]
     Active Substance: CARBIDOPA\LEVODOPA
     Dosage: UNK UNK, 3 /DAY
     Route: 048
  13. CARBIDOPA AND LEVODOPA [Concomitant]
     Active Substance: CARBIDOPA\LEVODOPA
     Indication: PARKINSON^S DISEASE
     Dosage: UNK (3RD DOSE 1 AND 1/2 TABLET, 4TH DOSE 1 TABLET)
     Route: 065
     Dates: start: 2019
  14. PLAVIX [Concomitant]
     Active Substance: CLOPIDOGREL BISULFATE
     Indication: PRODUCT USED FOR UNKNOWN INDICATION
     Dosage: UNK, MORNING
     Route: 065
  15. RYTARY [Suspect]
     Active Substance: CARBIDOPA\LEVODOPA
     Dosage: 3 CAPSULES, QID
     Route: 048
     Dates: start: 20191111, end: 2019

REACTIONS (9)
  - Therapeutic product effect decreased [Unknown]
  - Skin laceration [Recovered/Resolved]
  - Enuresis [Recovering/Resolving]
  - Therapy interrupted [Unknown]
  - Fall [Recovered/Resolved]
  - Food interaction [Unknown]
  - Pollakiuria [Not Recovered/Not Resolved]
  - Freezing phenomenon [Not Recovered/Not Resolved]
  - Dyskinesia [Recovered/Resolved]

NARRATIVE: CASE EVENT DATE: 2019
